FAERS Safety Report 24668310 (Version 1)
Quarter: 2024Q4

REPORT INFORMATION
  Report Type: Spontaneous
  Country: RO (occurrence: RO)
  Receive Date: 20241127
  Receipt Date: 20241127
  Transmission Date: 20250114
  Serious: Yes (Other)
  Sender: AMGEN
  Company Number: RO-AMGEN-ROUSL2024228702

PATIENT
  Age: 64 Year
  Sex: Male

DRUGS (4)
  1. VECTIBIX [Suspect]
     Active Substance: PANITUMUMAB
     Indication: Colorectal cancer metastatic
     Dosage: 6 MILLIGRAM/KILOGRAM, Q2WK ( (EVERY 2 WEEKS OR /14 DAYS))
     Route: 040
     Dates: start: 202212
  2. LEUCOVORIN [Concomitant]
     Active Substance: LEUCOVORIN\LEUCOVORIN CALCIUM
     Indication: Colorectal cancer metastatic
     Dosage: UNK UNK, Q2WK (EVERY 2 WEEKS OR (EVERY 2 WEEKS OR /14 DAYS))
     Route: 040
     Dates: start: 202212
  3. FLUOROURACIL [Concomitant]
     Active Substance: FLUOROURACIL
     Indication: Colorectal cancer metastatic
     Dosage: UNK UNK, Q2WK (EVERY 2 WEEKS OR /14 DAYS)
     Route: 040
     Dates: start: 202212
  4. OXALIPLATIN [Concomitant]
     Active Substance: OXALIPLATIN
     Indication: Colorectal cancer metastatic
     Dosage: UNK UNK, Q2WK (EVERY 2 WEEKS OR /14 DAYS)
     Route: 040
     Dates: start: 202212

REACTIONS (4)
  - Neuropathy peripheral [Unknown]
  - Therapy partial responder [Unknown]
  - Skin toxicity [Recovering/Resolving]
  - Palmar-plantar erythrodysaesthesia syndrome [Unknown]

NARRATIVE: CASE EVENT DATE: 20220101
